FAERS Safety Report 20801319 (Version 9)
Quarter: 2022Q4

REPORT INFORMATION
  Report Type: Report from Study
  Country: IL (occurrence: None)
  Receive Date: 20220509
  Receipt Date: 20221104
  Transmission Date: 20230112
  Serious: Yes (Other)
  Sender: FDA-Public Use
  Company Number: IL-ROCHE-2802614

PATIENT
  Age: 66 Year
  Sex: Male
  Weight: 73 kg

DRUGS (14)
  1. COBIMETINIB [Suspect]
     Active Substance: COBIMETINIB
     Indication: Non-small cell lung cancer metastatic
     Dosage: DAILY ON DAYS 1-21 OF EACH 28 DAYS CYCLE?THE MOST RECENT DOSE OF COBIMETINIB PRIOR TO AES WERE 24/MA
     Route: 048
     Dates: start: 20210304
  2. VEMURAFENIB [Suspect]
     Active Substance: VEMURAFENIB
     Indication: Non-small cell lung cancer metastatic
     Dosage: THE MOST RECENT DOSE OF VEMURAFENIB 720 MG PRIOR TO AES WERE 29/MAR/2021 + 01/MAY/2021, 02-APR-2022
     Route: 048
     Dates: start: 20210304
  3. ATEZOLIZUMAB [Suspect]
     Active Substance: ATEZOLIZUMAB
     Indication: Non-small cell lung cancer metastatic
     Dosage: START DATE OF MOST RECENT DOSE OF STUDY DRUG PRIOR TO AE AND SAE: 26-APR-2022
     Route: 041
     Dates: start: 20210426
  4. FOLI [Concomitant]
     Indication: Folate deficiency
     Route: 048
     Dates: start: 20201027
  5. LIPITOR [Concomitant]
     Active Substance: ATORVASTATIN CALCIUM
     Indication: Hypercholesterolaemia
     Route: 048
     Dates: start: 20201027, end: 20210328
  6. LOPERAMIDE [Concomitant]
     Active Substance: LOPERAMIDE
     Indication: Diarrhoea
     Dates: start: 20210310, end: 20210414
  7. PROBIOTICS NOS [Concomitant]
     Active Substance: PROBIOTICS NOS
     Indication: Abdominal pain
     Dates: start: 20210318
  8. METAMIZOLE [Concomitant]
     Active Substance: METAMIZOLE
     Indication: Pyrexia
     Route: 048
     Dates: start: 20210316, end: 20210511
  9. CETIRIZINE HYDROCHLORIDE [Concomitant]
     Active Substance: CETIRIZINE HYDROCHLORIDE
     Indication: Pruritus
     Route: 048
     Dates: start: 20210407
  10. LOSARTAN POTASSIUM [Concomitant]
     Active Substance: LOSARTAN POTASSIUM
     Indication: Hypertension
     Route: 048
     Dates: start: 20210517, end: 20210720
  11. LOSARTAN POTASSIUM [Concomitant]
     Active Substance: LOSARTAN POTASSIUM
     Route: 048
     Dates: start: 20210721, end: 20210905
  12. NORVASC [Concomitant]
     Active Substance: AMLODIPINE BESYLATE
     Indication: Hypertension
     Route: 048
     Dates: start: 20210905
  13. CALCIUM [Concomitant]
     Active Substance: CALCIUM
     Indication: Hypocalcaemia
     Route: 048
     Dates: start: 20210607
  14. BISOPROLOL FUMARATE [Concomitant]
     Active Substance: BISOPROLOL FUMARATE
     Indication: Hypertension
     Route: 048
     Dates: start: 20201115

REACTIONS (3)
  - Retinal tear [Recovered/Resolved with Sequelae]
  - Central serous chorioretinopathy [Recovered/Resolved]
  - Rash maculo-papular [Recovered/Resolved]

NARRATIVE: CASE EVENT DATE: 20210329
